FAERS Safety Report 25086181 (Version 3)
Quarter: 2025Q2

REPORT INFORMATION
  Report Type: Spontaneous
  Country: GB (occurrence: GB)
  Receive Date: 20250317
  Receipt Date: 20250404
  Transmission Date: 20250716
  Serious: Yes (Life-Threatening, Other)
  Sender: ABBVIE
  Company Number: None

PATIENT
  Age: 37 Year
  Sex: Female
  Weight: 64 kg

DRUGS (1)
  1. BOTOX [Suspect]
     Active Substance: ONABOTULINUMTOXINA
     Indication: Facial cosmetic procedure
     Route: 065
     Dates: start: 20250311, end: 20250311

REACTIONS (7)
  - Loss of consciousness [Unknown]
  - Pharyngeal swelling [Recovering/Resolving]
  - Malaise [Unknown]
  - Dysphagia [Unknown]
  - Face injury [Unknown]
  - Hypersensitivity [Unknown]
  - Mouth injury [Unknown]

NARRATIVE: CASE EVENT DATE: 20250301
